FAERS Safety Report 5374879-3 (Version None)
Quarter: 2007Q2

REPORT INFORMATION
  Report Type: 
  Country: None (occurrence: None)
  Receive Date: 20070629
  Receipt Date: 20070619
  Transmission Date: 20071010
  Serious: Yes (Hospitalization)
  Sender: FDA-Public Use
  Company Number: HQWYE704920JUN07

PATIENT
  Sex: Male

DRUGS (3)
  1. EFFEXOR XR [Suspect]
     Indication: BIPOLAR DISORDER
     Dosage: UNKNOWN STARTING DOSE - UP TO OVER 300 MG/DAY
     Route: 048
     Dates: start: 20050901
  2. ZYPREXA [Concomitant]
     Dosage: UNKNOWN
  3. LITHIUM [Concomitant]
     Dosage: UNKNOWN

REACTIONS (3)
  - DEPRESSION [None]
  - MANIA [None]
  - UNEVALUABLE EVENT [None]
